FAERS Safety Report 5014111-3 (Version None)
Quarter: 2006Q2

REPORT INFORMATION
  Report Type: 
  Country: None (occurrence: None)
  Receive Date: 20060414
  Receipt Date: 20060110
  Transmission Date: 20061013
  Serious: No
  Sender: FDA-Public Use
  Company Number: 2006SP000147

PATIENT
  Age: 42 Year
  Sex: Male
  Weight: 86.637 kg

DRUGS (1)
  1. LUNESTA [Suspect]
     Indication: INSOMNIA
     Dosage: 2 MG;HS;ORAL
     Route: 048
     Dates: start: 20060105

REACTIONS (2)
  - DRY MOUTH [None]
  - HYPERTENSION [None]
